FAERS Safety Report 8575630-6 (Version None)
Quarter: 2012Q3

REPORT INFORMATION
  Report Type: 
  Country: None (occurrence: None)
  Receive Date: 20120807
  Receipt Date: 20120803
  Transmission Date: 20120928
  Serious: Yes (Other)
  Sender: FDA-Public Use
  Company Number: PHHY2009CA39789

PATIENT
  Sex: Female

DRUGS (4)
  1. SANDOSTATIN LAR [Suspect]
     Indication: DIARRHOEA
     Dosage: 20 MG, EVERY 4 WEEKS
     Route: 030
     Dates: start: 20090911
  2. IMATINIB MESYLATE [Concomitant]
  3. SANDOSTATIN LAR [Suspect]
     Dosage: 30 MG, QMO
     Route: 030
  4. SANDOSTATIN LAR [Suspect]
     Dosage: 30 MG, ONCE A MONTH
     Route: 030

REACTIONS (7)
  - WEIGHT DECREASED [None]
  - MUSCLE SPASMS [None]
  - ABDOMINAL PAIN [None]
  - DECREASED APPETITE [None]
  - BACK PAIN [None]
  - DIARRHOEA [None]
  - ANGINA PECTORIS [None]
